FAERS Safety Report 24582069 (Version 1)
Quarter: 2024Q4

REPORT INFORMATION
  Report Type: Spontaneous
  Country: US (occurrence: US)
  Receive Date: 20241105
  Receipt Date: 20241105
  Transmission Date: 20250115
  Serious: No
  Sender: BAUSCH AND LOMB
  Company Number: US-BAUSCHBL-2024BNL036548

PATIENT
  Age: 55 Year
  Sex: Female

DRUGS (2)
  1. POLYMYXIN B SULFATE AND TRIMETHOPRIM [Suspect]
     Active Substance: POLYMYXIN B SULFATE\TRIMETHOPRIM SULFATE
     Indication: Conjunctivitis
     Dosage: PATIENT USED TWO DOSES ON 23/OCT/2024 PRIOR TO GOING TO BED
     Route: 065
     Dates: start: 20241023, end: 202410
  2. ERYTHROMYCIN [Suspect]
     Active Substance: ERYTHROMYCIN
     Indication: Conjunctivitis
     Route: 047
     Dates: start: 20241024, end: 202410

REACTIONS (14)
  - Ophthalmic fluid drainage [Unknown]
  - Foreign body sensation in eyes [Unknown]
  - Eye disorder [Unknown]
  - Product residue present [Unknown]
  - Burning sensation [Unknown]
  - Erythema [Unknown]
  - Pruritus [Unknown]
  - Rash erythematous [Unknown]
  - Electric shock sensation [Unknown]
  - Rash [Unknown]
  - Skin burning sensation [Unknown]
  - Lacrimation increased [Unknown]
  - Eye pruritus [Unknown]
  - Ocular hyperaemia [Unknown]

NARRATIVE: CASE EVENT DATE: 20241023
